FAERS Safety Report 23329119 (Version 1)
Quarter: 2023Q4

REPORT INFORMATION
  Report Type: Report from Study
  Country: US (occurrence: None)
  Receive Date: 20231222
  Receipt Date: 20231222
  Transmission Date: 20240109
  Serious: Yes (Hospitalization, Other)
  Sender: FDA-Public Use
  Company Number: 2023A285020

PATIENT
  Sex: Male
  Weight: 70.3 kg

DRUGS (17)
  1. LYNPARZA [Suspect]
     Active Substance: OLAPARIB
     Indication: Pancreatic carcinoma
     Route: 048
     Dates: start: 2022
  2. LYNPARZA [Suspect]
     Active Substance: OLAPARIB
     Indication: Pancreatic carcinoma
     Dosage: 1 TABLET TWICE A DAY
     Route: 048
  3. CAPECITABINE [Concomitant]
     Active Substance: CAPECITABINE
  4. CREON [Concomitant]
     Active Substance: PANCRELIPASE AMYLASE\PANCRELIPASE LIPASE\PANCRELIPASE PROTEASE
  5. PLAVIX [Concomitant]
     Active Substance: CLOPIDOGREL BISULFATE
  6. LIPITOR [Concomitant]
     Active Substance: ATORVASTATIN CALCIUM
  7. METOPROLOL TARTRATE [Concomitant]
     Active Substance: METOPROLOL TARTRATE
  8. PANTOPRAZOLE SODIUM [Concomitant]
     Active Substance: PANTOPRAZOLE SODIUM
  9. COENZYME Q10 [Concomitant]
     Active Substance: DIETARY SUPPLEMENT\UBIDECARENONE
  10. HERBALS\TURMERIC [Concomitant]
     Active Substance: HERBALS\TURMERIC
  11. MAGNESIUM [Concomitant]
     Active Substance: MAGNESIUM
  12. ONIVYDE [Concomitant]
     Active Substance: IRINOTECAN HYDROCHLORIDE
  13. LOPERAMIDE [Concomitant]
     Active Substance: LOPERAMIDE
  14. ZARXIO [Concomitant]
     Active Substance: FILGRASTIM-SNDZ
  15. TRESIBA [Concomitant]
     Active Substance: INSULIN DEGLUDEC
  16. ALLOPURINOL [Concomitant]
     Active Substance: ALLOPURINOL
  17. VITAMIN B12 [Concomitant]
     Active Substance: CYANOCOBALAMIN

REACTIONS (10)
  - Diarrhoea [Recovered/Resolved]
  - Chest pain [Unknown]
  - Blood magnesium decreased [Unknown]
  - Laboratory test abnormal [Unknown]
  - Seasonal allergy [Unknown]
  - Sneezing [Unknown]
  - Immune system disorder [Unknown]
  - White blood cell count decreased [Unknown]
  - Blood cholesterol decreased [Unknown]
  - Blood potassium decreased [Unknown]
